FAERS Safety Report 13957799 (Version 1)
Quarter: 2017Q3

REPORT INFORMATION
  Report Type: Spontaneous
  Country: US (occurrence: US)
  Receive Date: 20170911
  Receipt Date: 20170911
  Transmission Date: 20171128
  Serious: Yes (Other)
  Sender: FDA-Public Use
  Company Number: US-ROCHE-1104370

PATIENT
  Age: 81 Year
  Sex: Female

DRUGS (7)
  1. RITUXAN [Suspect]
     Active Substance: RITUXIMAB
     Route: 065
     Dates: start: 20011003
  2. FLUDARABINE [Concomitant]
     Active Substance: FLUDARABINE PHOSPHATE
     Indication: PRODUCT USED FOR UNKNOWN INDICATION
     Route: 065
     Dates: start: 20000724, end: 20000825
  3. RITUXAN [Suspect]
     Active Substance: RITUXIMAB
     Route: 065
     Dates: start: 20011009
  4. RITUXAN [Suspect]
     Active Substance: RITUXIMAB
     Indication: CHRONIC LYMPHOCYTIC LEUKAEMIA
     Route: 042
     Dates: start: 20011002
  5. ZOFRAN [Concomitant]
     Active Substance: ONDANSETRON HYDROCHLORIDE
     Route: 065
  6. BENADRYL [Concomitant]
     Active Substance: DIPHENHYDRAMINE HYDROCHLORIDE
     Route: 042
  7. ZANTAC [Concomitant]
     Active Substance: RANITIDINE HYDROCHLORIDE
     Route: 065

REACTIONS (3)
  - Chest pain [Unknown]
  - Tachycardia [Unknown]
  - Arrhythmia [Unknown]

NARRATIVE: CASE EVENT DATE: 20011002
